FAERS Safety Report 17231840 (Version 1)
Quarter: 2020Q1

REPORT INFORMATION
  Report Type: Spontaneous
  Country: US (occurrence: US)
  Receive Date: 20200103
  Receipt Date: 20200103
  Transmission Date: 20200409
  Serious: Yes (Other)
  Sender: FDA-Public Use
  Company Number: US-PFIZER INC-2019560719

PATIENT

DRUGS (1)
  1. XANAX [Suspect]
     Active Substance: ALPRAZOLAM
     Dosage: UNK UNK, DAILY

REACTIONS (3)
  - Feeling abnormal [Unknown]
  - Hyperhidrosis [Unknown]
  - Generalised tonic-clonic seizure [Unknown]
